FAERS Safety Report 4587851-8 (Version None)
Quarter: 2005Q1

REPORT INFORMATION
  Report Type: 
  Country: None (occurrence: None)
  Receive Date: 20050125
  Receipt Date: 20040909
  Transmission Date: 20050727
  Serious: No
  Sender: FDA-Public Use
  Company Number: USA040977871

PATIENT
  Age: 69 Year
  Sex: Female

DRUGS (1)
  1. FORTEO [Suspect]
     Indication: OSTEOPOROSIS
     Dates: start: 20040401, end: 20040907

REACTIONS (5)
  - ASTHENIA [None]
  - FATIGUE [None]
  - NAUSEA [None]
  - PRURITUS [None]
  - SOMNOLENCE [None]
